FAERS Safety Report 7808439-9 (Version None)
Quarter: 2011Q4

REPORT INFORMATION
  Report Type: 
  Country: None (occurrence: None)
  Receive Date: 20111012
  Receipt Date: 20111004
  Transmission Date: 20120403
  Serious: Yes (Hospitalization)
  Sender: FDA-Public Use
  Company Number: FR-JNJFOC-20110908873

PATIENT
  Sex: Male

DRUGS (3)
  1. MORPHINE SULFATE [Suspect]
     Indication: PRODUCT USED FOR UNKNOWN INDICATION
     Route: 048
     Dates: start: 20110418, end: 20110418
  2. LEXOMIL [Suspect]
     Indication: PRODUCT USED FOR UNKNOWN INDICATION
     Route: 048
     Dates: start: 20110418, end: 20110418
  3. DURAGESIC-100 [Suspect]
     Indication: PRODUCT USED FOR UNKNOWN INDICATION
     Route: 062
     Dates: start: 20110418, end: 20110418

REACTIONS (8)
  - MIOSIS [None]
  - C-REACTIVE PROTEIN INCREASED [None]
  - SOMNOLENCE [None]
  - VOMITING [None]
  - BLOOD POTASSIUM INCREASED [None]
  - POISONING DELIBERATE [None]
  - COMA SCALE ABNORMAL [None]
  - CELL DEATH [None]
